FAERS Safety Report 9934053 (Version 1)
Quarter: 2014Q1

REPORT INFORMATION
  Report Type: Spontaneous
  Country: US (occurrence: US)
  Receive Date: 20140228
  Receipt Date: 20140228
  Transmission Date: 20141002
  Serious: No
  Sender: FDA-Public Use
  Company Number: US-MYLANLABS-2013S1006572

PATIENT
  Age: 69 Year
  Sex: Male

DRUGS (1)
  1. METFORMIN HYDROCHLORIDE TABLETS USP [Suspect]
     Route: 048
     Dates: start: 201211

REACTIONS (3)
  - Chest pain [Not Recovered/Not Resolved]
  - Dizziness [Not Recovered/Not Resolved]
  - Headache [Not Recovered/Not Resolved]
